APPROVED DRUG PRODUCT: LAXILOSE
Active Ingredient: LACTULOSE
Strength: 10GM/15ML
Dosage Form/Route: SOLUTION;ORAL
Application: A073686 | Product #001
Applicant: NOSTRUM LABORATORIES INC
Approved: May 28, 1993 | RLD: No | RS: No | Type: DISCN